FAERS Safety Report 7383468-0 (Version None)
Quarter: 2011Q1

REPORT INFORMATION
  Report Type: 
  Country: None (occurrence: None)
  Receive Date: 20110330
  Receipt Date: 20110323
  Transmission Date: 20110831
  Serious: Yes (Hospitalization)
  Sender: FDA-Public Use
  Company Number: FR-PFIZER INC-2011065768

PATIENT
  Age: 17 Year
  Sex: Female

DRUGS (8)
  1. ZITHROMAX [Suspect]
     Dosage: UNK
     Route: 048
     Dates: start: 20110104
  2. CORTANCYL [Suspect]
     Indication: EYE INFECTION TOXOPLASMAL
     Dosage: 10 MG, 1X/DAY
     Route: 048
     Dates: start: 20110106
  3. LEDERFOLIN [Suspect]
     Dosage: UNK
     Route: 048
     Dates: start: 20110104
  4. ZITHROMAX [Suspect]
     Indication: EYE INFECTION TOXOPLASMAL
     Dosage: UNK
     Route: 048
     Dates: end: 20101101
  5. MALOCIDE [Suspect]
     Indication: EYE INFECTION TOXOPLASMAL
     Dosage: UNK
     Route: 048
     Dates: end: 20101101
  6. LEDERFOLIN [Suspect]
     Indication: EYE INFECTION TOXOPLASMAL
     Dosage: UNK
     Route: 048
     Dates: end: 20101101
  7. MALOCIDE [Suspect]
     Dosage: UNK
     Route: 048
     Dates: start: 20110104
  8. CORTANCYL [Suspect]
     Dosage: UNK

REACTIONS (3)
  - GASTRITIS [None]
  - VOMITING [None]
  - HAEMATEMESIS [None]
